FAERS Safety Report 8235264-X (Version None)
Quarter: 2012Q1

REPORT INFORMATION
  Report Type: 
  Country: None (occurrence: None)
  Receive Date: 20120326
  Receipt Date: 20120316
  Transmission Date: 20120608
  Serious: Yes (Hospitalization)
  Sender: FDA-Public Use
  Company Number: FR-BRISTOL-MYERS SQUIBB COMPANY-16464810

PATIENT
  Age: 79 Year
  Sex: Female

DRUGS (2)
  1. CEFPODOXIME PROXETIL [Interacting]
     Indication: SINUSITIS
     Route: 048
     Dates: start: 20120209, end: 20120213
  2. COUMADIN [Suspect]
     Indication: ATRIAL FIBRILLATION
     Route: 048
     Dates: end: 20120213

REACTIONS (4)
  - HAEMORRHAGE [None]
  - INTERNATIONAL NORMALISED RATIO INCREASED [None]
  - DRUG INTERACTION [None]
  - OVERDOSE [None]
